FAERS Safety Report 8057264 (Version 4)
Quarter: 2013Q3

REPORT INFORMATION
  Report Type: Spontaneous
  Country: US (occurrence: None)
  Receive Date: 20110713
  Receipt Date: 20130812
  Transmission Date: 20140515
  Serious: Yes (Hospitalization, Other)
  Sender: FDA-Public Use
  Company Number: JPI-P-015665

PATIENT
  Age: 53 Year
  Sex: Female
  Weight: 55.79 kg

DRUGS (17)
  1. XYREM [Suspect]
     Indication: CATAPLEXY
     Dosage: 6 GM (3 GM,2 IN 1 D),ORAL
     Route: 048
     Dates: start: 20060215, end: 2006
  2. FLUTICASONE AND SALMETEROL [Concomitant]
  3. ALBUTEROL SULFATE [Concomitant]
  4. HYDROXYZINE HYDROCHLORIDE [Concomitant]
  5. CITALOPRAM [Concomitant]
  6. TOLTERODINE TARTRATE [Concomitant]
  7. CALCIUM CITRATE WITH VITAMIN D [Concomitant]
  8. CALCIUM CARBONATE [Concomitant]
  9. STOOL SOFTENER [Concomitant]
  10. HYDROCHLOROTHIAZIDE [Concomitant]
  11. OXYBUTYNIN [Concomitant]
  12. PROMETHAZINE [Concomitant]
  13. OMEPRAZOLE [Concomitant]
  14. CLONIDINE [Concomitant]
  15. ALPRAZOLAM [Concomitant]
  16. TUMS [Concomitant]
  17. BELLADONNA WITH PHENOBARBITAL [Suspect]
     Indication: MUSCLE SPASMS
     Dates: start: 201212

REACTIONS (5)
  - Intestinal obstruction [None]
  - Short-bowel syndrome [None]
  - Vocal cord disorder [None]
  - Muscle spasms [None]
  - Condition aggravated [None]
